FAERS Safety Report 15131051 (Version 1)
Quarter: 2018Q3

REPORT INFORMATION
  Report Type: Spontaneous
  Country: GR (occurrence: GR)
  Receive Date: 20180711
  Receipt Date: 20180711
  Transmission Date: 20181010
  Serious: Yes (Other)
  Sender: FDA-Public Use
  Company Number: GR-MYLANLABS-2018M1049216

PATIENT
  Age: 71 Year
  Sex: Female

DRUGS (1)
  1. LETROZOLE MYLAN [Suspect]
     Active Substance: LETROZOLE
     Indication: INVASIVE DUCTAL BREAST CARCINOMA

REACTIONS (3)
  - Musculoskeletal pain [Unknown]
  - Tendon disorder [Unknown]
  - Tendon rupture [Unknown]
